FAERS Safety Report 7120608-2 (Version None)
Quarter: 2010Q4

REPORT INFORMATION
  Report Type: 
  Country: None (occurrence: None)
  Receive Date: 20101122
  Receipt Date: 20101122
  Transmission Date: 20110411
  Serious: Yes (Death, Life-Threatening)
  Sender: FDA-Public Use
  Company Number: None

PATIENT
  Sex: Male
  Weight: 56.6996 kg

DRUGS (1)
  1. PREDNISONE [Suspect]
     Dosage: ORAL
     Route: 048

REACTIONS (2)
  - IMMUNE SYSTEM DISORDER [None]
  - OVERDOSE [None]
